FAERS Safety Report 23404358 (Version 1)
Quarter: 2024Q1

REPORT INFORMATION
  Report Type: Spontaneous
  Country: GB (occurrence: GB)
  Receive Date: 20240116
  Receipt Date: 20240116
  Transmission Date: 20240409
  Serious: Yes (Other)
  Sender: FDA-Public Use
  Company Number: None

PATIENT
  Sex: Male

DRUGS (4)
  1. TRAZODONE HYDROCHLORIDE [Suspect]
     Active Substance: TRAZODONE HYDROCHLORIDE
     Indication: Product used for unknown indication
     Dosage: INCREASED TO 100MG AT NIGHT
     Dates: start: 20230914
  2. TESTOSTERONE [Concomitant]
     Active Substance: TESTOSTERONE
     Indication: Blood testosterone decreased
     Dates: start: 20210407
  3. MIRTAZAPINE [Concomitant]
     Active Substance: MIRTAZAPINE
     Indication: Sleep disorder
  4. CYCLIZINE [Concomitant]
     Active Substance: CYCLIZINE
     Indication: Nausea

REACTIONS (7)
  - Nightmare [Not Recovered/Not Resolved]
  - Influenza like illness [Unknown]
  - Visual impairment [Unknown]
  - Hallucinations, mixed [Unknown]
  - Dizziness [Unknown]
  - Gait disturbance [Unknown]
  - Presyncope [Unknown]

NARRATIVE: CASE EVENT DATE: 20230915
